FAERS Safety Report 20942935 (Version 4)
Quarter: 2022Q4

REPORT INFORMATION
  Report Type: Spontaneous
  Country: JP (occurrence: JP)
  Receive Date: 20220610
  Receipt Date: 20221221
  Transmission Date: 20230113
  Serious: Yes (Hospitalization, Other)
  Sender: FDA-Public Use
  Company Number: JP-SA-2022SA211597

PATIENT
  Age: 71 Year
  Sex: Female
  Weight: 52 kg

DRUGS (4)
  1. DUPIXENT [Suspect]
     Active Substance: DUPILUMAB
     Indication: Chronic rhinosinusitis with nasal polyps
     Dosage: 300 MG, 1X
     Route: 058
     Dates: start: 20220427, end: 20220427
  2. DUPIXENT [Suspect]
     Active Substance: DUPILUMAB
     Dosage: 300 MG, QOW
     Route: 058
     Dates: start: 20220309, end: 20220420
  3. FLUTICASONE [Concomitant]
     Active Substance: FLUTICASONE
     Indication: Product used for unknown indication
     Dosage: UNK
     Route: 045
     Dates: start: 2005
  4. FLUTICASONE FUROATE\VILANTEROL TRIFENATATE [Concomitant]
     Active Substance: FLUTICASONE FUROATE\VILANTEROL TRIFENATATE
     Indication: Product used for unknown indication
     Dosage: UNK
     Route: 055
     Dates: start: 20220302

REACTIONS (10)
  - Cerebral infarction [Recovering/Resolving]
  - Paralysis [Recovering/Resolving]
  - Mental impairment [Recovering/Resolving]
  - Muscular weakness [Recovering/Resolving]
  - Memory impairment [Recovering/Resolving]
  - Pyrexia [Recovered/Resolved]
  - Eosinophil count increased [Recovered/Resolved]
  - Dermatitis contact [Recovered/Resolved]
  - Rash [Recovered/Resolved]
  - Inappropriate schedule of product administration [Unknown]

NARRATIVE: CASE EVENT DATE: 20220101
